FAERS Safety Report 5610330-3 (Version None)
Quarter: 2008Q1

REPORT INFORMATION
  Report Type: 
  Country: None (occurrence: None)
  Receive Date: 20080128
  Receipt Date: 20060630
  Transmission Date: 20080703
  Serious: Yes (Hospitalization)
  Sender: FDA-Public Use
  Company Number: PV06.1432

PATIENT
  Age: 79 Year
  Sex: Female

DRUGS (3)
  1. PAROXETINE [Suspect]
     Indication: DEPRESSION
     Dosage: 10 MG,
  2. RISPERIDONE [Suspect]
     Dosage: 0.25 MG, BID
  3. GALANTAMINE (GALANTAMINE) [Suspect]

REACTIONS (10)
  - ANAEMIA [None]
  - ANTIDEPRESSANT DRUG LEVEL INCREASED [None]
  - CEREBRAL ATROPHY [None]
  - DRUG INTERACTION [None]
  - HYPOTHERMIA [None]
  - LETHARGY [None]
  - MENTAL STATUS CHANGES [None]
  - MUCOSAL DRYNESS [None]
  - ORAL INTAKE REDUCED [None]
  - THROMBOCYTOPENIA [None]
